FAERS Safety Report 18301901 (Version 1)
Quarter: 2020Q3

REPORT INFORMATION
  Report Type: Spontaneous
  Country: US (occurrence: US)
  Receive Date: 20200923
  Receipt Date: 20200923
  Transmission Date: 20201103
  Serious: Yes (Other)
  Sender: FDA-Public Use
  Company Number: US-PFIZER INC-2020363772

PATIENT
  Age: 81 Year
  Sex: Male
  Weight: 93.89 kg

DRUGS (1)
  1. VYNDAQEL [Suspect]
     Active Substance: TAFAMIDIS MEGLUMINE
     Indication: AMYLOIDOSIS SENILE
     Dosage: 40 MG, 2X/DAY(20MG CAPSULE BY MOUTH, 2?20MG CAPSULES IN THE AM AND 2?20MG CAPSULES IN THE PM)
     Route: 048
     Dates: start: 201908

REACTIONS (4)
  - Arthralgia [Unknown]
  - Product dose omission issue [Unknown]
  - Renal impairment [Recovering/Resolving]
  - Protein total increased [Not Recovered/Not Resolved]

NARRATIVE: CASE EVENT DATE: 202009
